FAERS Safety Report 7741668-1 (Version None)
Quarter: 2011Q3

REPORT INFORMATION
  Report Type: 
  Country: None (occurrence: None)
  Receive Date: 20110912
  Receipt Date: 20110902
  Transmission Date: 20111222
  Serious: Yes (Other)
  Sender: FDA-Public Use
  Company Number: US-RANBAXY-2011US-47428

PATIENT

DRUGS (4)
  1. NEXIUM [Concomitant]
     Indication: PRODUCT USED FOR UNKNOWN INDICATION
     Dosage: UNK, UNK
     Route: 065
  2. ZOLPIDEM [Concomitant]
     Indication: PRODUCT USED FOR UNKNOWN INDICATION
     Dosage: 5 MG , UNK
     Route: 065
  3. LORAZEPAM [Suspect]
     Indication: INSOMNIA
     Dosage: 1 MG, QD AT BED TIME
     Route: 048
  4. SYNTHROID [Concomitant]
     Indication: PRODUCT USED FOR UNKNOWN INDICATION
     Dosage: UNK, UNK
     Route: 065

REACTIONS (9)
  - VOMITING [None]
  - MUSCULOSKELETAL PAIN [None]
  - PRURITUS [None]
  - MUSCULAR WEAKNESS [None]
  - HEART RATE IRREGULAR [None]
  - NAUSEA [None]
  - DYSPEPSIA [None]
  - OROPHARYNGEAL PAIN [None]
  - FEELING HOT [None]
